FAERS Safety Report 5257135-3 (Version None)
Quarter: 2007Q1

REPORT INFORMATION
  Report Type: 
  Country: None (occurrence: None)
  Receive Date: 20061220
  Receipt Date: 20060816
  Transmission Date: 20070707
  Serious: No
  Sender: FDA-Public Use
  Company Number: 2006RL000170

PATIENT
  Age: 49 Year
  Sex: Male
  Weight: 90.7194 kg

DRUGS (6)
  1. OMACOR [Suspect]
     Indication: BLOOD TRIGLYCERIDES INCREASED
     Dosage: 2 GM; QD; PO
     Route: 048
     Dates: start: 20060509
  2. OMACOR [Suspect]
     Indication: HIGH DENSITY LIPOPROTEIN
     Dosage: 2 GM; QD; PO
     Route: 048
     Dates: start: 20060509
  3. METAMUCIL [Concomitant]
  4. PROBUCOL [Concomitant]
  5. ACETYLSALICYLIC ACID SRT [Concomitant]
  6. PRAVACHOL [Concomitant]

REACTIONS (4)
  - ABDOMINAL DISTENSION [None]
  - BLOOD TRIGLYCERIDES INCREASED [None]
  - DRUG INEFFECTIVE [None]
  - HIGH DENSITY LIPOPROTEIN DECREASED [None]
